FAERS Safety Report 19817977 (Version 1)
Quarter: 2021Q3

REPORT INFORMATION
  Report Type: Report from Study
  Country: None (occurrence: US)
  Receive Date: 20210910
  Receipt Date: 20210910
  Transmission Date: 20211014
  Serious: Yes (Hospitalization)
  Sender: FDA-Public Use
  Company Number: US-ABBVIE-21K-163-4068066-00

PATIENT
  Sex: Female

DRUGS (4)
  1. HUMIRA [Suspect]
     Active Substance: ADALIMUMAB
     Indication: CROHN^S DISEASE
     Route: 058
     Dates: start: 2016, end: 2017
  2. HUMIRA [Suspect]
     Active Substance: ADALIMUMAB
     Indication: COLITIS ULCERATIVE
     Route: 058
     Dates: start: 2021, end: 20210819
  3. COVID?19 VACCINE [Concomitant]
     Indication: COVID-19 IMMUNISATION
     Dosage: JOHNSON AND JOHNSON
     Route: 030
  4. STELARA [Suspect]
     Active Substance: USTEKINUMAB
     Indication: CROHN^S DISEASE
     Route: 065

REACTIONS (4)
  - Rheumatoid arthritis [Not Recovered/Not Resolved]
  - Cartilage atrophy [Recovered/Resolved]
  - Therapeutic product effect decreased [Unknown]
  - Arthralgia [Recovering/Resolving]

NARRATIVE: CASE EVENT DATE: 2019
